FAERS Safety Report 11004511 (Version 1)
Quarter: 2015Q2

REPORT INFORMATION
  Report Type: Spontaneous
  Country: LT (occurrence: LT)
  Receive Date: 20150409
  Receipt Date: 20150409
  Transmission Date: 20150821
  Serious: Yes (Death, Hospitalization)
  Sender: FDA-Public Use
  Company Number: LT-JNJFOC-20150321820

PATIENT
  Age: 9 Year
  Sex: Female

DRUGS (4)
  1. VINCRISTINE [Suspect]
     Active Substance: VINCRISTINE
     Indication: B PRECURSOR TYPE ACUTE LEUKAEMIA
     Route: 065
     Dates: start: 200509
  2. DOXORUBICIN HYDROCHLORIDE. [Suspect]
     Active Substance: DOXORUBICIN HYDROCHLORIDE
     Indication: B PRECURSOR TYPE ACUTE LEUKAEMIA
     Route: 065
     Dates: start: 200509
  3. DEXAMETHASONE. [Suspect]
     Active Substance: DEXAMETHASONE
     Indication: B PRECURSOR TYPE ACUTE LEUKAEMIA
     Route: 065
     Dates: start: 200509
  4. L-ASPARAGINASE [Suspect]
     Active Substance: ASPARAGINASE
     Indication: B PRECURSOR TYPE ACUTE LEUKAEMIA
     Route: 065
     Dates: start: 200509

REACTIONS (3)
  - Septic shock [Fatal]
  - Neutropenia [Fatal]
  - Stomatitis [Unknown]
